FAERS Safety Report 12754190 (Version 1)
Quarter: 2016Q3

REPORT INFORMATION
  Report Type: Spontaneous
  Country: US (occurrence: US)
  Receive Date: 20160916
  Receipt Date: 20160916
  Transmission Date: 20161109
  Serious: Yes (Hospitalization)
  Sender: FDA-Public Use
  Company Number: US-AUROBINDO-AUR-APU-2016-11237

PATIENT
  Age: 87 Year
  Sex: Female
  Weight: 52.16 kg

DRUGS (8)
  1. DULOXETINE DELAYED-RELEASE CAPSULES USP 30 MG [Suspect]
     Active Substance: DULOXETINE
     Indication: PAIN
  2. MICARDIS [Concomitant]
     Active Substance: TELMISARTAN
     Indication: CARDIAC DISORDER
     Dosage: 40 MG, UNK
     Route: 065
  3. DILTIAZEM. [Concomitant]
     Active Substance: DILTIAZEM
     Indication: BLOOD PRESSURE MEASUREMENT
     Dosage: 120 MG, ONCE A DAY
     Route: 065
     Dates: start: 20160301
  4. NORVASC [Concomitant]
     Active Substance: AMLODIPINE BESYLATE
     Indication: BLOOD PRESSURE MEASUREMENT
     Dosage: 2.5 MG, ONCE A DAY
     Dates: start: 20160301
  5. DULOXETINE DELAYED-RELEASE CAPSULES USP 30 MG [Suspect]
     Active Substance: DULOXETINE
     Indication: DEPRESSION
     Dosage: 30 MG, ONCE A DAY
     Route: 048
  6. ELIQUIS [Suspect]
     Active Substance: APIXABAN
     Indication: ATRIAL FIBRILLATION
     Dosage: 2.5 MG, ONCE A DAY
     Route: 048
     Dates: start: 20160301
  7. LYRICA [Suspect]
     Active Substance: PREGABALIN
     Indication: OSTEOARTHRITIS
     Dosage: 50 MG, TWO TIMES A DAY
     Route: 048
     Dates: start: 2016
  8. LYRICA [Suspect]
     Active Substance: PREGABALIN
     Indication: BACK PAIN

REACTIONS (4)
  - Diarrhoea haemorrhagic [Unknown]
  - Gastrointestinal haemorrhage [Recovered/Resolved]
  - Product quality issue [Recovered/Resolved]
  - Drug dose omission [Recovered/Resolved]

NARRATIVE: CASE EVENT DATE: 201608
